FAERS Safety Report 12779204 (Version 1)
Quarter: 2016Q3

REPORT INFORMATION
  Report Type: Spontaneous
  Country: US (occurrence: US)
  Receive Date: 20160926
  Receipt Date: 20160926
  Transmission Date: 20161109
  Serious: No
  Sender: FDA-Public Use
  Company Number: US-JAZZ-2016-US-011274

PATIENT
  Sex: Female

DRUGS (50)
  1. METHYLPHENIDATE. [Concomitant]
     Active Substance: METHYLPHENIDATE
  2. TRIAMCINOLONE [Concomitant]
     Active Substance: TRIAMCINOLONE
  3. TAMSULOSIN HCL [Concomitant]
     Active Substance: TAMSULOSIN
  4. TYLENOL ARTHRITIS ER [Concomitant]
  5. VITAMIN D3 [Concomitant]
     Active Substance: CHOLECALCIFEROL
  6. NUCYNTA [Concomitant]
     Active Substance: TAPENTADOL HYDROCHLORIDE
  7. MULTIVITAMINS WITH IRON [Concomitant]
     Active Substance: IRON\VITAMINS
  8. KEFLEX [Concomitant]
     Active Substance: CEPHALEXIN
  9. PREDNISONE. [Concomitant]
     Active Substance: PREDNISONE
  10. ALBUTEROL. [Concomitant]
     Active Substance: ALBUTEROL
  11. DICLOFENAC SODIUM ER [Concomitant]
     Active Substance: DICLOFENAC SODIUM
  12. ZOLPIDEM TARTRATE ER [Concomitant]
     Active Substance: ZOLPIDEM TARTRATE
  13. XANAX [Concomitant]
     Active Substance: ALPRAZOLAM
  14. PROTONIX DR [Concomitant]
  15. CELEXA [Concomitant]
     Active Substance: CITALOPRAM HYDROBROMIDE
  16. XYREM [Suspect]
     Active Substance: SODIUM OXYBATE
     Dosage: 4 G, SECOND DOSE
     Route: 048
     Dates: start: 201605
  17. FLONASE [Concomitant]
     Active Substance: FLUTICASONE PROPIONATE
  18. RIBOFLAVIN [Concomitant]
     Active Substance: RIBOFLAVIN
  19. XYREM [Suspect]
     Active Substance: SODIUM OXYBATE
     Dosage: DOSE ADJUSTMENTS
     Route: 048
     Dates: start: 201411, end: 201605
  20. ALPRAZOLAM. [Concomitant]
     Active Substance: ALPRAZOLAM
  21. ONDANSETRON [Concomitant]
     Active Substance: ONDANSETRON
  22. BOTOX [Concomitant]
     Active Substance: ONABOTULINUMTOXINA
  23. RITALIN [Concomitant]
     Active Substance: METHYLPHENIDATE HYDROCHLORIDE
  24. AMBIEN CR [Concomitant]
     Active Substance: ZOLPIDEM TARTRATE
  25. NASCOBAL [Concomitant]
     Active Substance: CYANOCOBALAMIN
  26. ALLEGRA ALLERGY [Concomitant]
     Active Substance: FEXOFENADINE HYDROCHLORIDE
  27. COENZYME Q10 [Concomitant]
     Active Substance: UBIDECARENONE
  28. HYDROCODONE/ACETAMINOPHEN [Concomitant]
     Active Substance: ACETAMINOPHEN\HYDROCODONE
  29. LEVOFLOXACIN. [Concomitant]
     Active Substance: LEVOFLOXACIN
  30. LIDOCAINE. [Concomitant]
     Active Substance: LIDOCAINE
  31. PROAIR HFA [Concomitant]
     Active Substance: ALBUTEROL SULFATE
  32. LEVAQUIN [Concomitant]
     Active Substance: LEVOFLOXACIN
  33. AFRIN [Concomitant]
     Active Substance: OXYMETAZOLINE
  34. ASPIRIN. [Concomitant]
     Active Substance: ASPIRIN
  35. TIZANIDINE HCL [Concomitant]
     Active Substance: TIZANIDINE HYDROCHLORIDE
  36. OCEAN SALINE NASAL SPRAY [Concomitant]
     Active Substance: SODIUM CHLORIDE
  37. FISH OIL EC [Concomitant]
  38. VITAMIN D [Concomitant]
     Active Substance: CHOLECALCIFEROL
  39. PHENERGAN [Concomitant]
     Active Substance: PROMETHAZINE HYDROCHLORIDE
  40. XYREM [Suspect]
     Active Substance: SODIUM OXYBATE
     Dosage: 3.5 G, FIRST DOSE
     Route: 048
     Dates: start: 201605
  41. LEXAPRO [Concomitant]
     Active Substance: ESCITALOPRAM OXALATE
  42. NUCYNTA [Concomitant]
     Active Substance: TAPENTADOL HYDROCHLORIDE
  43. ZYRTEC [Concomitant]
     Active Substance: CETIRIZINE HYDROCHLORIDE
  44. VITAMIN B2 [Concomitant]
     Active Substance: RIBOFLAVIN
  45. SIMVASTATIN. [Concomitant]
     Active Substance: SIMVASTATIN
  46. XYREM [Suspect]
     Active Substance: SODIUM OXYBATE
     Indication: SLEEP DISORDER
     Dosage: 0.75 G, BID
     Route: 048
     Dates: start: 201410, end: 201411
  47. DOXYCYCLINE HYCLATE DR [Concomitant]
     Active Substance: DOXYCYCLINE HYCLATE
  48. DIAZEPAM. [Concomitant]
     Active Substance: DIAZEPAM
  49. VICODIN [Concomitant]
     Active Substance: ACETAMINOPHEN\HYDROCODONE BITARTRATE
  50. PANTOPRAZOLE SODIUM DR [Concomitant]
     Active Substance: PANTOPRAZOLE SODIUM

REACTIONS (2)
  - Migraine [Not Recovered/Not Resolved]
  - Unevaluable event [Unknown]
